FAERS Safety Report 14681144 (Version 1)
Quarter: 2018Q1

REPORT INFORMATION
  Report Type: Spontaneous
  Country: NL (occurrence: NL)
  Receive Date: 20180326
  Receipt Date: 20180326
  Transmission Date: 20180509
  Serious: Yes (Hospitalization)
  Sender: FDA-Public Use
  Company Number: NL-TEVA-2018-NL-870916

PATIENT
  Age: 68 Year
  Sex: Male
  Weight: 95 kg

DRUGS (11)
  1. MICARDUS PLUS [Concomitant]
     Dosage: 1DD 80/25 MG ; THERAPY START DATE AND END DATE ASKED BUT UNKNOWN
  2. ACENOCOUMAROL [Concomitant]
     Active Substance: ACENOCOUMAROL
     Dosage: THERAPY START DATE AND END DATE ASKED BUT UNKNOWN
  3. NOVOMIX 30 [Concomitant]
     Active Substance: INSULIN ASPART
     Dosage: 2DD 24 UNITS ; THERAPY START DATE AND END DATE ASKED BUT UNKNOWN
  4. METOPROLOL. [Concomitant]
     Active Substance: METOPROLOL
     Dosage: 1DD200MG ; THERAPY START DATE AND END DATE ASKED BUT UNKNOWN
  5. AMOXICILLINE [Concomitant]
     Active Substance: AMOXICILLIN
     Dosage: TOT 15/1/18; THERAPY START DATE ASKED BUT UNKNOWN
  6. AMLODIPINE [Concomitant]
     Active Substance: AMLODIPINE BESYLATE
     Dosage: 1DD10MG ; THERAPY START DATE AND END DATE ASKED BUT UNKNOWN
  7. SIMVASTATINE [Concomitant]
     Active Substance: SIMVASTATIN
     Dosage: 1DD40MG; THERAPY START DATE AND END DATE ASKED BUT UNKNOWN
  8. LANOXIN [Concomitant]
     Active Substance: DIGOXIN
     Dosage: 1DD 0.125 ; THERAPY START DATE AND END DATE ASKED BUT UNKNOWN
  9. PANTOPRAZOLE SODIUM. [Suspect]
     Active Substance: PANTOPRAZOLE SODIUM
     Indication: DYSPEPSIA
     Dosage: 1DD 40 MG
     Route: 065
     Dates: start: 20110101, end: 20180116
  10. METFORMINE [Concomitant]
     Active Substance: METFORMIN HYDROCHLORIDE
     Dosage: 2DD1000MG ; THERAPY START DATE AND END DATE ASKED BUT UNKNOWN
  11. SLOW K [Concomitant]
     Active Substance: POTASSIUM CHLORIDE
     Dosage: 2DD600MG ; THERAPY START DATE AND END DATE ASKED BUT UNKNOWN

REACTIONS (6)
  - Nausea [Recovering/Resolving]
  - Hypocalcaemia [Recovering/Resolving]
  - Hypomagnesaemia [Recovering/Resolving]
  - Hypokalaemia [Recovering/Resolving]
  - Vomiting [Recovering/Resolving]
  - Muscular weakness [Recovering/Resolving]

NARRATIVE: CASE EVENT DATE: 20180116
